FAERS Safety Report 26046925 (Version 1)
Quarter: 2025Q4

REPORT INFORMATION
  Report Type: Spontaneous
  Country: CA (occurrence: None)
  Receive Date: 20251114
  Receipt Date: 20251114
  Transmission Date: 20260117
  Serious: Yes (Disabling, Other)
  Sender: FDA-CTU
  Company Number: None

PATIENT
  Age: 61 Year
  Sex: Male
  Weight: 56.25 kg

DRUGS (10)
  1. WELLBUTRIN [Suspect]
     Active Substance: BUPROPION HYDROCHLORIDE
     Indication: Depression
     Dates: start: 19820101, end: 20250601
  2. UNSPECIFIED INGREDIENT [Suspect]
     Active Substance: UNSPECIFIED INGREDIENT
     Indication: Anxiety
     Dates: start: 19990801, end: 20240101
  3. Prosthetic [Concomitant]
  4. Andromache sodium [Concomitant]
  5. FOLIC ACID [Concomitant]
     Active Substance: FOLIC ACID
  6. LEVOTHYROXINE SODIUM [Concomitant]
     Active Substance: LEVOTHYROXINE SODIUM
  7. RAMIPRIL [Concomitant]
     Active Substance: RAMIPRIL
  8. ROSUVASTATIN [Concomitant]
     Active Substance: ROSUVASTATIN
  9. SYMBICORT [Concomitant]
     Active Substance: BUDESONIDE\FORMOTEROL FUMARATE DIHYDRATE
  10. VENTOLIN [Concomitant]
     Active Substance: ALBUTEROL SULFATE

REACTIONS (9)
  - Overdose [None]
  - Joint noise [None]
  - Phantom limb syndrome [None]
  - Osteonecrosis [None]
  - Affective disorder [None]
  - Anger [None]
  - Anger [None]
  - Negative thoughts [None]
  - Arthralgia [None]

NARRATIVE: CASE EVENT DATE: 20210101
